FAERS Safety Report 4636218-2 (Version None)
Quarter: 2005Q2

REPORT INFORMATION
  Report Type: 
  Country: None (occurrence: None)
  Receive Date: 20050325
  Receipt Date: 20041213
  Transmission Date: 20051028
  Serious: No
  Sender: FDA-Public Use
  Company Number: USA040567744

PATIENT
  Age: 68 Year
  Sex: Female

DRUGS (3)
  1. FORTEO [Suspect]
     Indication: OSTEOPOROSIS
     Dosage: 20 UG DAY
     Dates: start: 20040515
  2. LOTENSIN [Concomitant]
  3. NORVASC [Concomitant]

REACTIONS (8)
  - BACK PAIN [None]
  - BONE PAIN [None]
  - DIZZINESS [None]
  - DRUG INTERACTION [None]
  - HEART RATE INCREASED [None]
  - INJECTION SITE IRRITATION [None]
  - NECK PAIN [None]
  - PALPITATIONS [None]
